FAERS Safety Report 5554369-5 (Version None)
Quarter: 2007Q4

REPORT INFORMATION
  Report Type: 
  Country: None (occurrence: None)
  Receive Date: 20071212
  Receipt Date: 20071212
  Transmission Date: 20080405
  Serious: Yes (Life-Threatening)
  Sender: FDA-Public Use
  Company Number: None

PATIENT
  Sex: Female
  Weight: 200 kg

DRUGS (3)
  1. AMOXICILLIN + CLAVULANATE POTASSIUM [Suspect]
     Indication: CAT SCRATCH DISEASE
     Dosage: 500 - 125 MG EVERY 12 HRS BY MOUTH
     Route: 048
     Dates: start: 20071005
  2. AMOXICILLIN + CLAVULANATE POTASSIUM [Suspect]
     Indication: CELLULITIS
     Dosage: 500 - 125 MG EVERY 12 HRS BY MOUTH
     Route: 048
     Dates: start: 20071005
  3. AMOXICILLIN + CLAVULANATE POTASSIUM [Suspect]
     Indication: STAPHYLOCOCCAL INFECTION
     Dosage: 500 - 125 MG EVERY 12 HRS BY MOUTH
     Route: 048
     Dates: start: 20071005

REACTIONS (3)
  - CRYING [None]
  - DEPRESSION [None]
  - FEELING ABNORMAL [None]
